FAERS Safety Report 10158397 (Version 1)
Quarter: 2014Q2

REPORT INFORMATION
  Report Type: Spontaneous
  Country: BR (occurrence: BR)
  Receive Date: 20140507
  Receipt Date: 20140507
  Transmission Date: 20141212
  Serious: Yes (Other)
  Sender: FDA-Public Use
  Company Number: PHHY2014BR054777

PATIENT
  Age: 48 Year
  Sex: Female

DRUGS (1)
  1. FORTEKOR 5 (ANIMAL HEALTH) [Suspect]
     Dosage: 1 DF, UNK

REACTIONS (1)
  - Accidental exposure to product [Unknown]
